FAERS Safety Report 14757902 (Version 2)
Quarter: 2018Q4

REPORT INFORMATION
  Report Type: Spontaneous
  Country: BE (occurrence: BE)
  Receive Date: 20180413
  Receipt Date: 20181107
  Transmission Date: 20190204
  Serious: Yes (Other)
  Sender: FDA-Public Use
  Company Number: BE-ELI_LILLY_AND_COMPANY-BE201804002209

PATIENT
  Age: 72 Year
  Sex: Male

DRUGS (7)
  1. CYRAMZA [Suspect]
     Active Substance: RAMUCIRUMAB
     Indication: PRODUCT USED FOR UNKNOWN INDICATION
     Dosage: UNK UNK, UNKNOWN
     Route: 065
     Dates: start: 20170728, end: 20180315
  2. TAXOL [Concomitant]
     Active Substance: PACLITAXEL
     Indication: PRODUCT USED FOR UNKNOWN INDICATION
     Dosage: UNK UNK, UNKNOWN
     Route: 065
  3. ASAFLOW [Concomitant]
     Active Substance: ASPIRIN
  4. BEFACT [CYANOCOBALAMIN;PYRIDOXINE HYDROCHLORI [Concomitant]
  5. OXYCONTIN [Concomitant]
     Active Substance: OXYCODONE HYDROCHLORIDE
  6. PANTOMED [PANTOPRAZOLE SODIUM SESQUIHYDRATE] [Concomitant]
  7. VALTRAN [NALOXONE HYDROCHLORIDE;TILIDINE HYDR [Concomitant]

REACTIONS (2)
  - Proteinuria [Not Recovered/Not Resolved]
  - Nephrotic syndrome [Unknown]

NARRATIVE: CASE EVENT DATE: 20180301
